FAERS Safety Report 21353370 (Version 1)
Quarter: 2022Q3

REPORT INFORMATION
  Report Type: Spontaneous
  Country: CN (occurrence: CN)
  Receive Date: 20220920
  Receipt Date: 20220920
  Transmission Date: 20221027
  Serious: Yes (Other)
  Sender: FDA-Public Use
  Company Number: None

PATIENT
  Age: 51 Year
  Sex: Female
  Weight: 60 kg

DRUGS (4)
  1. CYCLOPHOSPHAMIDE [Suspect]
     Active Substance: CYCLOPHOSPHAMIDE
     Indication: Breast cancer female
     Dosage: 1G, QD, DILUTED WITH 0.9% SODIUM CHLORIDE 50 ML
     Route: 041
     Dates: start: 20220905, end: 20220905
  2. SODIUM CHLORIDE [Suspect]
     Active Substance: SODIUM CHLORIDE
     Indication: Medication dilution
     Dosage: 50 ML , QD, DILUTED IN CYCLOPHOSPHAMIDE
     Route: 041
     Dates: start: 20220905, end: 20220905
  3. SODIUM CHLORIDE [Suspect]
     Active Substance: SODIUM CHLORIDE
     Dosage: 250 ML , QD, DILUTED IN DOCETAXEL
     Route: 041
     Dates: start: 20220905, end: 20220905
  4. DOCETAXEL [Suspect]
     Active Substance: DOCETAXEL
     Indication: Breast cancer female
     Dosage: 130 MG, QD, DILUTED WITH 0.9% SODIUM CHLORIDE 250ML
     Route: 041
     Dates: start: 20220905, end: 20220905

REACTIONS (3)
  - White blood cell count decreased [Recovering/Resolving]
  - Asthenia [Recovering/Resolving]
  - Fatigue [Unknown]

NARRATIVE: CASE EVENT DATE: 20220911
